FAERS Safety Report 4263271-0 (Version None)
Quarter: 2004Q1

REPORT INFORMATION
  Report Type: 
  Country: None (occurrence: None)
  Receive Date: 20040105
  Receipt Date: 20031222
  Transmission Date: 20041129
  Serious: Yes (Hospitalization)
  Sender: FDA-Public Use
  Company Number: SE-GLAXOSMITHKLINE-B0318426A

PATIENT
  Age: 78 Year
  Sex: Male

DRUGS (15)
  1. ZINACEF [Suspect]
     Dosage: 2.1G PER DAY
     Route: 042
     Dates: start: 20030908, end: 20030915
  2. ORUDIS RETARD [Suspect]
     Dosage: 1U PER DAY
     Route: 048
     Dates: end: 20030922
  3. CEFADROXIL [Suspect]
     Dosage: 2U PER DAY
     Route: 048
     Dates: start: 20030915, end: 20030922
  4. ENALAPRIL [Suspect]
     Route: 048
     Dates: end: 20030908
  5. SERETIDE [Concomitant]
     Route: 055
  6. CITALOPRAM [Concomitant]
  7. ACETAMINOPHEN [Concomitant]
  8. ERCO-FER [Concomitant]
  9. STESOLID [Concomitant]
  10. LAXOBERAL [Concomitant]
     Route: 048
  11. BETOLVEX [Concomitant]
  12. LAKTULOS [Concomitant]
     Route: 048
  13. IMOVANE [Concomitant]
  14. PROSCAR [Concomitant]
  15. FLUTICASONE PROPIONATE [Concomitant]
     Route: 055

REACTIONS (17)
  - AGRANULOCYTOSIS [None]
  - ANOREXIA [None]
  - BONE MARROW DISORDER [None]
  - C-REACTIVE PROTEIN INCREASED [None]
  - DIZZINESS [None]
  - HAEMOGLOBIN ABNORMAL [None]
  - MYCOPLASMA INFECTION [None]
  - NASAL NEOPLASM [None]
  - NEUTROPHILIA [None]
  - ORAL FUNGAL INFECTION [None]
  - PERIANAL ABSCESS [None]
  - PHARYNGOLARYNGEAL PAIN [None]
  - PRURITUS [None]
  - PSEUDOMONAL BACTERAEMIA [None]
  - PYREXIA [None]
  - RASH GENERALISED [None]
  - WHITE BLOOD CELL COUNT DECREASED [None]
